FAERS Safety Report 13773676 (Version 1)
Quarter: 2017Q3

REPORT INFORMATION
  Report Type: Spontaneous
  Country: US (occurrence: US)
  Receive Date: 20170720
  Receipt Date: 20170720
  Transmission Date: 20171127
  Serious: No
  Sender: FDA-Public Use
  Company Number: None

PATIENT
  Age: 15 Year
  Sex: Male
  Weight: 59.02 kg

DRUGS (1)
  1. ATOMOXETINE HCL 80 MG [Suspect]
     Active Substance: ATOMOXETINE HYDROCHLORIDE
     Indication: ATTENTION DEFICIT/HYPERACTIVITY DISORDER
     Route: 048
     Dates: start: 20170610, end: 20170623

REACTIONS (5)
  - Irritability [None]
  - Depression [None]
  - Weight decreased [None]
  - Sleep disorder [None]
  - Anhedonia [None]
